FAERS Safety Report 12644905 (Version 1)
Quarter: 2016Q3

REPORT INFORMATION
  Report Type: Spontaneous
  Country: US (occurrence: US)
  Receive Date: 20160811
  Receipt Date: 20160811
  Transmission Date: 20161109
  Serious: Yes (Hospitalization, Other)
  Sender: FDA-Public Use
  Company Number: US-JNJFOC-20160806843

PATIENT
  Sex: Female
  Weight: 95.26 kg

DRUGS (2)
  1. HALDOL [Suspect]
     Active Substance: HALOPERIDOL
     Indication: DEPRESSION
     Route: 030
     Dates: end: 201608
  2. HALDOL [Suspect]
     Active Substance: HALOPERIDOL
     Indication: DEPRESSION
     Route: 048
     Dates: end: 2016

REACTIONS (8)
  - Vaginal haemorrhage [Unknown]
  - Cerebral haemangioma [Unknown]
  - Off label use [Unknown]
  - Depression [Unknown]
  - Breast enlargement [Unknown]
  - Eye swelling [Unknown]
  - Weight increased [Unknown]
  - Product use issue [Unknown]
